FAERS Safety Report 10329260 (Version 1)
Quarter: 2014Q3

REPORT INFORMATION
  Report Type: Report from Study
  Country: EG (occurrence: EG)
  Receive Date: 20140721
  Receipt Date: 20140721
  Transmission Date: 20150326
  Serious: Yes (Death, Congenital Anomaly)
  Sender: FDA-Public Use
  Company Number: EG-SA-2014SA095253

PATIENT

DRUGS (1)
  1. LANTUS [Suspect]
     Active Substance: INSULIN GLARGINE
     Indication: MATERNAL EXPOSURE TIMING UNSPECIFIED
     Route: 064

REACTIONS (2)
  - Muscle atrophy [Fatal]
  - Foetal exposure during pregnancy [Unknown]
